FAERS Safety Report 23775519 (Version 1)
Quarter: 2024Q2

REPORT INFORMATION
  Report Type: Spontaneous
  Country: CO (occurrence: CO)
  Receive Date: 20240423
  Receipt Date: 20240423
  Transmission Date: 20240715
  Serious: Yes (Other)
  Sender: FDA-Public Use
  Company Number: CO-SA-2024SA117208

PATIENT
  Age: 13 Year
  Sex: Male

DRUGS (3)
  1. CLOBAZAM [Suspect]
     Active Substance: CLOBAZAM
     Indication: Product used for unknown indication
     Dosage: 10 MG, Q8H
     Route: 048
     Dates: start: 2021, end: 202401
  2. CLOBAZAM [Suspect]
     Active Substance: CLOBAZAM
     Dosage: 10 MG, Q12H
     Route: 048
     Dates: start: 202401
  3. LEVETIRACETAM [Concomitant]
     Active Substance: LEVETIRACETAM
     Indication: Product used for unknown indication
     Dosage: UNK UNK, Q8H (4CM EVERY 8 HOURS)
     Route: 065

REACTIONS (2)
  - Petit mal epilepsy [Unknown]
  - Intentional product misuse [Unknown]

NARRATIVE: CASE EVENT DATE: 20240101
